FAERS Safety Report 8823557 (Version 2)
Quarter: 2012Q4

REPORT INFORMATION
  Report Type: Report from Study
  Country: US (occurrence: US)
  Receive Date: 20121003
  Receipt Date: 20121026
  Transmission Date: 20130627
  Serious: No
  Sender: FDA-Public Use
  Company Number: US-VERTEX PHARMACEUTICAL INC.-2012-021078

PATIENT
  Age: 48 Year
  Sex: Female
  Weight: 55 kg

DRUGS (9)
  1. VX-950 [Suspect]
     Indication: HEPATITIS C
     Dosage: 750 mg, qd
     Route: 048
  2. PEGASYS [Suspect]
     Indication: HEPATITIS C
     Route: 058
  3. RIBAVIRIN [Suspect]
     Indication: HEPATITIS C
     Dosage: 200 mg, qd
     Route: 048
  4. SLOW FE [Concomitant]
     Dosage: 142 mg, qd
     Route: 048
  5. LORAZEPAM [Concomitant]
     Dosage: 0.5 mg, qd
     Route: 048
  6. ZOFRAN                             /00955301/ [Concomitant]
     Dosage: 24 mg, qd
     Route: 048
  7. LEVOTHYROXIN [Concomitant]
     Dosage: 75 ?g, qd
     Route: 048
  8. TYLENOL                            /00724201/ [Concomitant]
     Dosage: 500 mg, qd
     Route: 048
  9. LEVOFLOXACIN [Concomitant]
     Dosage: 250 mg, qd
     Route: 048

REACTIONS (7)
  - Urinary tract infection [Unknown]
  - Dizziness [Unknown]
  - Myalgia [Unknown]
  - Fatigue [Unknown]
  - Dysgeusia [Unknown]
  - Rash papular [Recovered/Resolved]
  - Pruritus [Unknown]
